FAERS Safety Report 10658412 (Version 2)
Quarter: 2014Q4

REPORT INFORMATION
  Report Type: Spontaneous
  Country: US (occurrence: US)
  Receive Date: 20141217
  Receipt Date: 20141217
  Transmission Date: 20150529
  Serious: Yes (Hospitalization)
  Sender: FDA-Public Use
  Company Number: US-BANPHARM-20143284

PATIENT
  Age: 19 Year
  Sex: Female

DRUGS (2)
  1. BAYER [Suspect]
     Active Substance: ASPIRIN
     Indication: ACNE
     Route: 061
  2. ALEVE [Suspect]
     Active Substance: NAPROXEN SODIUM
     Indication: HEADACHE
     Dosage: 1 DF, QD,
     Route: 048

REACTIONS (2)
  - Incorrect drug administration duration [Unknown]
  - Gastric perforation [Recovered/Resolved]
